FAERS Safety Report 4411535-X (Version None)
Quarter: 2004Q3

REPORT INFORMATION
  Report Type: 
  Country: None (occurrence: None)
  Receive Date: 20040729
  Receipt Date: 20040511
  Transmission Date: 20050211
  Serious: Yes (Other)
  Sender: FDA-Public Use
  Company Number: PHBS2004BR06509

PATIENT
  Age: 32 Year
  Sex: Female
  Weight: 75 kg

DRUGS (6)
  1. TOFRANIL [Suspect]
     Indication: DEPRESSION
     Dosage: 12.5 MG, QD
     Route: 048
     Dates: start: 20040510
  2. LEVOGLUTAMIDE [Concomitant]
     Route: 048
  3. CALCIUM GLUCONATE [Concomitant]
     Route: 048
  4. PYRIDOXINE HYDROCHLORIDE [Concomitant]
     Route: 048
  5. PHARMATON [Concomitant]
     Dosage: 1 TABLET/D
     Route: 048
  6. DITETRAETHYLAMMONIUM PHOSPHATE [Concomitant]

REACTIONS (5)
  - ANXIETY [None]
  - DISORIENTATION [None]
  - FEAR [None]
  - LOSS OF CONSCIOUSNESS [None]
  - TIC [None]
